FAERS Safety Report 24968132 (Version 1)
Quarter: 2025Q1

REPORT INFORMATION
  Report Type: Spontaneous
  Country: US (occurrence: US)
  Receive Date: 20250214
  Receipt Date: 20250214
  Transmission Date: 20250409
  Serious: No
  Sender: ROCHE
  Company Number: US-ROCHE-10000200325

PATIENT
  Age: 63 Year
  Sex: Male
  Weight: 105.68 kg

DRUGS (4)
  1. GAZYVA [Suspect]
     Active Substance: OBINUTUZUMAB
     Indication: Chronic lymphocytic leukaemia
     Route: 065
     Dates: start: 202407, end: 20250203
  2. OLMESARTAN [Concomitant]
     Active Substance: OLMESARTAN
     Dosage: MORE DOSAGE INFORMATION ONCE DAILY
  3. FINASTERIDE [Concomitant]
     Active Substance: FINASTERIDE
     Dosage: MORE DOSAGE INFORMATION ONCE A DAY
  4. ZINC [Concomitant]
     Active Substance: ZINC

REACTIONS (5)
  - Abdominal pain lower [Unknown]
  - Alanine aminotransferase increased [Unknown]
  - Insomnia [Unknown]
  - Hyperhidrosis [Unknown]
  - Aspartate aminotransferase increased [Unknown]

NARRATIVE: CASE EVENT DATE: 20241101
